FAERS Safety Report 11226296 (Version 1)
Quarter: 2015Q2

REPORT INFORMATION
  Report Type: Other
  Country: TR (occurrence: TR)
  Receive Date: 20150629
  Receipt Date: 20150629
  Transmission Date: 20150821
  Serious: Yes (Other)
  Sender: FDA-Public Use
  Company Number: TR-ENDO PHARMACEUTICALS INC-2015-001392

PATIENT

DRUGS (1)
  1. HALOPERIDOL TABLETS [Suspect]
     Active Substance: HALOPERIDOL
     Indication: PRODUCT USED FOR UNKNOWN INDICATION
     Route: 065

REACTIONS (1)
  - Cardio-respiratory arrest [Unknown]
